FAERS Safety Report 10746939 (Version 1)
Quarter: 2015Q1

REPORT INFORMATION
  Report Type: Spontaneous
  Country: US (occurrence: US)
  Receive Date: 20150129
  Receipt Date: 20150129
  Transmission Date: 20150721
  Serious: Yes (Other)
  Sender: FDA-Public Use
  Company Number: US-THROMBOGENICS NV-SPO-2014-1627

PATIENT
  Age: 64 Year
  Sex: Female

DRUGS (3)
  1. JETREA [Suspect]
     Active Substance: OCRIPLASMIN
     Indication: VITREOUS ADHESIONS
     Dosage: 0.125 MG, ONE TIME DOSE
     Route: 031
     Dates: start: 2013, end: 2013
  2. LIDOCAINE. [Concomitant]
     Active Substance: LIDOCAINE
     Dosage: UNK
     Dates: start: 2013, end: 2013
  3. POVIDONE IODINE [Concomitant]
     Active Substance: POVIDONE-IODINE
     Dosage: UNK
     Dates: start: 2013, end: 2013

REACTIONS (4)
  - Visual acuity tests abnormal [Unknown]
  - Retinal cyst [Unknown]
  - Macular hole [Unknown]
  - Disease progression [Unknown]

NARRATIVE: CASE EVENT DATE: 2013
